FAERS Safety Report 6488045-1 (Version None)
Quarter: 2009Q4

REPORT INFORMATION
  Report Type: 
  Country: None (occurrence: None)
  Receive Date: 20091210
  Receipt Date: 20091204
  Transmission Date: 20100525
  Serious: Yes (Hospitalization)
  Sender: FDA-Public Use
  Company Number: US-MERCK-0910USA01362

PATIENT
  Age: 74 Year
  Sex: Female
  Weight: 88 kg

DRUGS (9)
  1. JANUVIA [Suspect]
     Indication: DIABETES MELLITUS
     Route: 048
     Dates: start: 20080507, end: 20091009
  2. ACTOS [Concomitant]
     Route: 065
  3. AMARYL [Concomitant]
     Route: 065
  4. FUROSEMIDE [Concomitant]
     Route: 065
  5. LIPITOR [Concomitant]
     Route: 065
  6. LEVOTHYROXINE SODIUM [Concomitant]
     Route: 065
  7. METOPROLOL [Concomitant]
     Route: 065
  8. LISINOPRIL [Concomitant]
     Route: 048
  9. PROTONIX [Concomitant]
     Route: 065

REACTIONS (2)
  - BLOOD TRIGLYCERIDES INCREASED [None]
  - PANCREATITIS [None]
